FAERS Safety Report 9397901 (Version 1)
Quarter: 2013Q3

REPORT INFORMATION
  Report Type: Spontaneous
  Country: US (occurrence: None)
  Receive Date: 20130709
  Receipt Date: 20130709
  Transmission Date: 20140515
  Serious: Yes (Death)
  Sender: FDA-Public Use
  Company Number: HYP201307-000033

PATIENT
  Age: 5 Year
  Sex: Female
  Weight: 28 kg

DRUGS (4)
  1. RAVICTI [Suspect]
     Indication: ANAPLASTIC ASTROCYTOMA
     Route: 048
     Dates: start: 20130520, end: 20130623
  2. DEXAMETHASONE [Concomitant]
  3. TAMOXIFEN [Concomitant]
  4. UNSPECIFIED HERBAL MEDICATIONS [Concomitant]

REACTIONS (2)
  - Off label use [None]
  - Aspiration [None]
